FAERS Safety Report 5351550-5 (Version None)
Quarter: 2007Q2

REPORT INFORMATION
  Report Type: 
  Country: None (occurrence: None)
  Receive Date: 20070521
  Receipt Date: 20070219
  Transmission Date: 20071010
  Serious: No
  Sender: FDA-Public Use
  Company Number: WAES 0702USA03542

PATIENT
  Age: 53 Year
  Sex: Female
  Weight: 122.4712 kg

DRUGS (4)
  1. JANUVIA [Suspect]
     Indication: DIABETES MELLITUS NON-INSULIN-DEPENDENT
     Dosage: 100 MG/DAILY/PO
     Route: 048
     Dates: start: 20070207
  2. ACTOS [Concomitant]
  3. HYDROCHLOROTHIAZIDE (+) LISINOPR [Concomitant]
  4. METFORMIN [Concomitant]

REACTIONS (4)
  - DIZZINESS [None]
  - DYSGEUSIA [None]
  - FATIGUE [None]
  - NAUSEA [None]
